FAERS Safety Report 10620111 (Version 11)
Quarter: 2020Q2

REPORT INFORMATION
  Report Type: Report from Study
  Country: US (occurrence: US)
  Receive Date: 20141202
  Receipt Date: 20200625
  Transmission Date: 20200713
  Serious: Yes (Hospitalization, Other)
  Sender: FDA-Public Use
  Company Number: US-SA-2014SA111164

PATIENT
  Age: 30 Year
  Sex: Female

DRUGS (10)
  1. TERIFLUNOMIDE. [Suspect]
     Active Substance: TERIFLUNOMIDE
     Dosage: 14 MG,QD
     Route: 048
     Dates: start: 20180111, end: 20181218
  2. LOVENOX [Concomitant]
     Active Substance: ENOXAPARIN SODIUM
     Indication: ANTICOAGULANT THERAPY
     Dosage: UNK
     Route: 058
     Dates: start: 2017
  3. TERIFLUNOMIDE. [Suspect]
     Active Substance: TERIFLUNOMIDE
     Dosage: 14 MG,QD
     Route: 048
     Dates: start: 20150821, end: 20170501
  4. TERIFLUNOMIDE. [Suspect]
     Active Substance: TERIFLUNOMIDE
     Dosage: 14 MG,QD
     Route: 048
     Dates: start: 20180101, end: 201801
  5. TERIFLUNOMIDE. [Suspect]
     Active Substance: TERIFLUNOMIDE
     Indication: SECONDARY PROGRESSIVE MULTIPLE SCLEROSIS
     Dosage: 7 MG,QD
     Route: 048
     Dates: start: 20140807, end: 20140907
  6. ZOFRAN [Concomitant]
     Active Substance: ONDANSETRON HYDROCHLORIDE
     Dosage: UNK
     Route: 065
  7. LOVENOX [Concomitant]
     Active Substance: ENOXAPARIN SODIUM
     Dosage: 200 MG, QD
     Route: 058
     Dates: start: 20181026, end: 20181115
  8. TERIFLUNOMIDE. [Suspect]
     Active Substance: TERIFLUNOMIDE
     Dosage: 14 MG,QD
     Route: 048
     Dates: start: 20140908, end: 201507
  9. NEURONTIN [Concomitant]
     Active Substance: GABAPENTIN
     Indication: MUSCLE SPASMS
     Dosage: UNK
     Route: 065
  10. NEURONTIN [Concomitant]
     Active Substance: GABAPENTIN
     Indication: HYPOAESTHESIA

REACTIONS (45)
  - Fatigue [Not Recovered/Not Resolved]
  - Insomnia [Unknown]
  - Pain [Unknown]
  - Loss of consciousness [Unknown]
  - Optic neuritis [Not Recovered/Not Resolved]
  - Multiple sclerosis relapse [Not Recovered/Not Resolved]
  - Obsessive-compulsive disorder [Unknown]
  - Scar excision [Recovered/Resolved]
  - Stomatitis [Unknown]
  - Abdominal pain upper [Unknown]
  - Paraesthesia [Unknown]
  - Stress [Unknown]
  - Tendonitis [Recovered/Resolved]
  - Alopecia [Recovered/Resolved]
  - Multiple sclerosis [Not Recovered/Not Resolved]
  - Neuropathy peripheral [Not Recovered/Not Resolved]
  - Ankle fracture [Recovered/Resolved]
  - Anxiety [Unknown]
  - Dyspnoea [Unknown]
  - Hypoaesthesia [Not Recovered/Not Resolved]
  - Balance disorder [Not Recovered/Not Resolved]
  - Back disorder [Not Recovered/Not Resolved]
  - Fall [Recovered/Resolved]
  - Ligament sprain [Recovered/Resolved]
  - Dysstasia [Recovered/Resolved]
  - Foot fracture [Recovered/Resolved]
  - Tendon injury [Recovered/Resolved]
  - Tarsal tunnel syndrome [Recovered/Resolved]
  - Intentional product use issue [Unknown]
  - Memory impairment [Not Recovered/Not Resolved]
  - Condition aggravated [Not Recovered/Not Resolved]
  - Feeling cold [Unknown]
  - Memory impairment [Unknown]
  - Vomiting [Unknown]
  - Erythema [Unknown]
  - Migraine [Unknown]
  - Hot flush [Recovered/Resolved]
  - Tremor [Unknown]
  - Musculoskeletal stiffness [Unknown]
  - Nerve injury [Not Recovered/Not Resolved]
  - Heart rate increased [Unknown]
  - Unevaluable event [Unknown]
  - Headache [Unknown]
  - Nausea [Unknown]
  - Hypertension [Unknown]

NARRATIVE: CASE EVENT DATE: 2014
